FAERS Safety Report 14251192 (Version 1)
Quarter: 2017Q4

REPORT INFORMATION
  Report Type: Spontaneous
  Country: US (occurrence: US)
  Receive Date: 20171205
  Receipt Date: 20171205
  Transmission Date: 20180321
  Serious: Yes (Death, Hospitalization, Other)
  Sender: FDA-Public Use
  Company Number: US-CIPLA LTD.-2017US21885

PATIENT

DRUGS (5)
  1. ACETAMINOPHEN AND DIPHENHYDRAMINE HYDROCHLORIDE [Suspect]
     Active Substance: ACETAMINOPHEN\DIPHENHYDRAMINE HYDROCHLORIDE
     Dosage: 385 TABLETS
     Route: 048
  2. RISPERIDONE. [Suspect]
     Active Substance: RISPERIDONE
     Dosage: 0.5 MG ? 9
     Route: 048
  3. ZOLPIDEM TARTARATE [Suspect]
     Active Substance: ZOLPIDEM TARTRATE
     Dosage: 10 MG ? 90
     Route: 048
  4. ALPRAZOLAM. [Suspect]
     Active Substance: ALPRAZOLAM
     Dosage: 0.25 MG ? 480
     Route: 048
  5. FLUVOXAMINE [Suspect]
     Active Substance: FLUVOXAMINE
     Dosage: 100 MG ? 134
     Route: 048

REACTIONS (4)
  - Coma [Unknown]
  - Metabolic acidosis [Unknown]
  - Toxicity to various agents [Fatal]
  - Completed suicide [Fatal]
